FAERS Safety Report 7006718 (Version 7)
Quarter: 2012Q4

REPORT INFORMATION
  Report Type: 
  Country: US (occurrence: US)
  Receive Date: 20090529
  Receipt Date: 20120831
  Transmission Date: 20130627
  Serious: Yes (Other)
  Sender: FDA-Public Use
  Company Number: US-JNJFOC-20090506672

PATIENT
  Sex: Male

DRUGS (6)
  1. RISPERDAL [Suspect]
     Indication: BIPOLAR DISORDER
     Dosage: patient was on 3mg,4mg and 5mg of risperidone.
     Route: 065
  2. RISPERDAL [Suspect]
     Indication: ANXIETY
     Dosage: patient was on 3mg,4mg and 5mg of risperidone.
     Route: 065
  3. RISPERDAL [Suspect]
     Indication: DEPRESSION
     Dosage: patient was on 3mg,4mg and 5mg of risperidone.
     Route: 065
  4. SEROQUEL [Suspect]
     Indication: BIPOLAR DISORDER
     Dosage: patient was on 200mg.300mg and 400mg of quetiapine
     Route: 065
  5. SEROQUEL [Suspect]
     Indication: ANXIETY
     Dosage: patient was on 200mg.300mg and 400mg of quetiapine
     Route: 065
  6. SEROQUEL [Suspect]
     Indication: DEPRESSION
     Dosage: patient was on 200mg.300mg and 400mg of quetiapine
     Route: 065

REACTIONS (1)
  - Type 2 diabetes mellitus [Unknown]
